FAERS Safety Report 4895337-6 (Version None)
Quarter: 2006Q1

REPORT INFORMATION
  Report Type: 
  Country: None (occurrence: None)
  Receive Date: 20060130
  Receipt Date: 20050629
  Transmission Date: 20060701
  Serious: Yes (Hospitalization, Disabling)
  Sender: FDA-Public Use
  Company Number: US-MERCK-0506USA04334

PATIENT
  Age: 49 Year
  Sex: Female
  Weight: 65 kg

DRUGS (1)
  1. VIOXX [Suspect]
     Indication: PAIN
     Route: 048
     Dates: start: 20010701, end: 20030301

REACTIONS (16)
  - ACUTE MYOCARDIAL INFARCTION [None]
  - BALANCE DISORDER [None]
  - CHEST PAIN [None]
  - DEPRESSION [None]
  - FIBROMYALGIA [None]
  - GLUCOSE TOLERANCE IMPAIRED [None]
  - HYPERTENSION [None]
  - INSOMNIA [None]
  - LIPIDS ABNORMAL [None]
  - MUSCLE SPASMS [None]
  - NECK PAIN [None]
  - NEUROPATHY [None]
  - ROAD TRAFFIC ACCIDENT [None]
  - STRESS [None]
  - VENTRICULAR DYSFUNCTION [None]
  - VISION BLURRED [None]
